FAERS Safety Report 12828684 (Version 1)
Quarter: 2016Q4

REPORT INFORMATION
  Report Type: Spontaneous
  Country: US (occurrence: US)
  Receive Date: 20161007
  Receipt Date: 20161007
  Transmission Date: 20170207
  Serious: No
  Sender: FDA-Public Use
  Company Number: US-SA-2015SA216666

PATIENT
  Age: 50 Year
  Sex: Male

DRUGS (11)
  1. PROVENTIL [Concomitant]
     Active Substance: ALBUTEROL
  2. MOBIC [Concomitant]
     Active Substance: MELOXICAM
  3. RAPAFLO [Concomitant]
     Active Substance: SILODOSIN
  4. DIOVAN HCT [Concomitant]
     Active Substance: HYDROCHLOROTHIAZIDE\VALSARTAN
  5. FINASTERIDE. [Concomitant]
     Active Substance: FINASTERIDE
  6. FLUVIRIN NOS [Concomitant]
     Active Substance: INFLUENZA VIRUS VACCINE
     Dosage: 2013-2014
  7. AUBAGIO [Suspect]
     Active Substance: TERIFLUNOMIDE
     Indication: MULTIPLE SCLEROSIS
     Route: 048
     Dates: start: 201510, end: 201512
  8. ACTHAR [Concomitant]
     Active Substance: CORTICOTROPIN
  9. COMBIVENT [Concomitant]
     Active Substance: ALBUTEROL SULFATE\IPRATROPIUM BROMIDE
  10. TRAZODONE [Concomitant]
     Active Substance: TRAZODONE HYDROCHLORIDE
  11. FINASTERIDE. [Concomitant]
     Active Substance: FINASTERIDE

REACTIONS (1)
  - Diarrhoea [Not Recovered/Not Resolved]
